FAERS Safety Report 6188688-9 (Version None)
Quarter: 2009Q2

REPORT INFORMATION
  Report Type: 
  Country: None (occurrence: None)
  Receive Date: 20090513
  Receipt Date: 20090503
  Transmission Date: 20091009
  Serious: Yes (Life-Threatening)
  Sender: FDA-Public Use
  Company Number: IT-JNJFOC-20090501376

PATIENT
  Age: 13 Year

DRUGS (5)
  1. FENTANYL [Suspect]
     Route: 062
  2. FENTANYL [Suspect]
     Indication: DRUG USE FOR UNKNOWN INDICATION
     Route: 062
  3. MORPHINE [Suspect]
     Indication: DRUG USE FOR UNKNOWN INDICATION
  4. MORPHINE [Suspect]
     Route: 030
  5. MORPHINE [Suspect]
     Route: 058

REACTIONS (2)
  - BREAKTHROUGH PAIN [None]
  - COMA [None]
